FAERS Safety Report 7751498-2 (Version None)
Quarter: 2011Q3

REPORT INFORMATION
  Report Type: 
  Country: None (occurrence: None)
  Receive Date: 20110914
  Receipt Date: 20110831
  Transmission Date: 20111222
  Serious: Yes (Other)
  Sender: FDA-Public Use
  Company Number: PHHY2011BR77791

PATIENT
  Sex: Female

DRUGS (3)
  1. NIFELAT [Concomitant]
     Indication: HYPERTENSION
     Dosage: 1 DF, (10/25 MG ONE TABLET IN THE MORNING)
     Route: 048
  2. DIOVAN HCT [Suspect]
     Indication: HYPERTENSION
     Dosage: 1 DF, (320/12.5 MG ONE TABLET AT NIGHT)
     Route: 048
     Dates: start: 20100101
  3. PANTOPRAZOLE [Concomitant]
     Indication: GASTRITIS
     Dosage: 40 MG

REACTIONS (6)
  - NAUSEA [None]
  - HEADACHE [None]
  - HYPERSENSITIVITY [None]
  - VOMITING [None]
  - FEELING COLD [None]
  - DYSAESTHESIA [None]
